FAERS Safety Report 10643418 (Version 1)
Quarter: 2014Q4

REPORT INFORMATION
  Report Type: Spontaneous
  Country: IT (occurrence: IT)
  Receive Date: 20141210
  Receipt Date: 20141210
  Transmission Date: 20150529
  Serious: Yes (Other)
  Sender: FDA-Public Use
  Company Number: IT-BAYER-2014-180226

PATIENT
  Age: 51 Year
  Sex: Female

DRUGS (3)
  1. BOSENTAN [Suspect]
     Active Substance: BOSENTAN\BOSENTAN MONOHYDRATE
     Indication: RAYNAUD^S PHENOMENON
  2. ILOPROST [Suspect]
     Active Substance: ILOPROST
     Indication: RAYNAUD^S PHENOMENON
     Route: 042
  3. NIFEDIPINE. [Suspect]
     Active Substance: NIFEDIPINE
     Indication: RAYNAUD^S PHENOMENON

REACTIONS (3)
  - Raynaud^s phenomenon [None]
  - Drug ineffective [None]
  - Finger amputation [None]

NARRATIVE: CASE EVENT DATE: 201310
